FAERS Safety Report 4620401-6 (Version None)
Quarter: 2005Q1

REPORT INFORMATION
  Report Type: 
  Country: None (occurrence: None)
  Receive Date: 20050324
  Receipt Date: 20050303
  Transmission Date: 20050727
  Serious: Yes (Hospitalization, Other)
  Sender: FDA-Public Use
  Company Number: USA050392393

PATIENT
  Age: 55 Year
  Sex: Female

DRUGS (1)
  1. HUMATROPE [Suspect]
     Dosage: 0.3 MG/1 DAY
     Dates: start: 20040213

REACTIONS (9)
  - BRAIN NEOPLASM [None]
  - CONVULSION [None]
  - DEHYDRATION [None]
  - FATIGUE [None]
  - HEADACHE [None]
  - MEDICAL DEVICE COMPLICATION [None]
  - MENTAL IMPAIRMENT [None]
  - PHARMACEUTICAL PRODUCT COMPLAINT [None]
  - WEIGHT DECREASED [None]
